FAERS Safety Report 9831873 (Version 2)
Quarter: 2014Q1

REPORT INFORMATION
  Report Type: Spontaneous
  Country: US (occurrence: US)
  Receive Date: 20140121
  Receipt Date: 20140307
  Transmission Date: 20141002
  Serious: No
  Sender: FDA-Public Use
  Company Number: US-PFIZER INC-2014014480

PATIENT
  Age: 82 Year
  Sex: Female

DRUGS (1)
  1. ADVIL [Suspect]
     Indication: MUSCULOSKELETAL PAIN
     Dosage: UNK
     Dates: start: 201401

REACTIONS (1)
  - Drug effect delayed [Unknown]
